FAERS Safety Report 7977786-2 (Version None)
Quarter: 2011Q4

REPORT INFORMATION
  Report Type: 
  Country: None (occurrence: None)
  Receive Date: 20111214
  Receipt Date: 20111129
  Transmission Date: 20120403
  Serious: No
  Sender: FDA-Public Use
  Company Number: US-AMGEN-USASP2011048500

PATIENT
  Age: 58 Year
  Sex: Female
  Weight: 90.703 kg

DRUGS (4)
  1. FOLIC ACID [Concomitant]
     Dosage: 3 MG, QD
     Route: 048
  2. ENBREL [Suspect]
     Indication: RHEUMATOID ARTHRITIS
     Dosage: 50 MG, QWK
     Route: 058
     Dates: start: 20110801
  3. SOMA [Concomitant]
     Dosage: 350 MG, QD
     Route: 048
     Dates: start: 20080918
  4. METHOTREXATE [Concomitant]
     Indication: RHEUMATOID ARTHRITIS
     Dosage: 10 MG, QWK
     Route: 048
     Dates: start: 20080411

REACTIONS (1)
  - INJECTION SITE MASS [None]
